FAERS Safety Report 20067995 (Version 1)
Quarter: 2021Q4

REPORT INFORMATION
  Report Type: Spontaneous
  Country: US (occurrence: None)
  Receive Date: 20211112
  Receipt Date: 20211112
  Transmission Date: 20220303
  Serious: Yes (Life-Threatening, Hospitalization)
  Sender: FDA-Public Use
  Company Number: None

PATIENT
  Age: 59 Year
  Sex: Male
  Weight: 88 kg

DRUGS (1)
  1. LITHIUM CARBONATE [Suspect]
     Active Substance: LITHIUM CARBONATE
     Indication: Depression
     Dosage: FREQUENCY : TWICE A DAY;?
     Route: 048
     Dates: start: 20210917, end: 20211105

REACTIONS (7)
  - Tardive dyskinesia [None]
  - Myalgia [None]
  - Arthralgia [None]
  - Tremor [None]
  - Ataxia [None]
  - Antipsychotic drug level increased [None]
  - Therapy change [None]

NARRATIVE: CASE EVENT DATE: 20211020
